FAERS Safety Report 7945180-6 (Version None)
Quarter: 2011Q4

REPORT INFORMATION
  Report Type: 
  Country: None (occurrence: None)
  Receive Date: 20111129
  Receipt Date: 20111124
  Transmission Date: 20120403
  Serious: Yes (Other)
  Sender: FDA-Public Use
  Company Number: CN-BAYER-2011-113344

PATIENT
  Age: 68 Year
  Sex: Female

DRUGS (4)
  1. INSULIN [Concomitant]
  2. MONOPRIL [Concomitant]
  3. ASPIRIN [Suspect]
     Dosage: 1 DF, QD
     Dates: end: 20101101
  4. ADALAT [Concomitant]

REACTIONS (2)
  - RASH [None]
  - ANAPHYLACTIC REACTION [None]
